FAERS Safety Report 14343272 (Version 1)
Quarter: 2018Q1

REPORT INFORMATION
  Report Type: Spontaneous
  Country: US (occurrence: US)
  Receive Date: 20180102
  Receipt Date: 20180102
  Transmission Date: 20180509
  Serious: Yes (Other)
  Sender: FDA-Public Use
  Company Number: US-ALLERGAN-1774391US

PATIENT
  Age: 60 Year
  Sex: Female

DRUGS (1)
  1. LINZESS [Suspect]
     Active Substance: LINACLOTIDE
     Indication: IRRITABLE BOWEL SYNDROME
     Dosage: 290 ?G, QAM
     Route: 048
     Dates: start: 2017, end: 2017

REACTIONS (3)
  - Diarrhoea [Recovered/Resolved]
  - Constipation [Unknown]
  - Endometriosis [Unknown]

NARRATIVE: CASE EVENT DATE: 2017
